FAERS Safety Report 9197887 (Version 1)
Quarter: 2013Q1

REPORT INFORMATION
  Report Type: Report from Study
  Country: US (occurrence: US)
  Receive Date: 20130328
  Receipt Date: 20130328
  Transmission Date: 20140127
  Serious: Yes (Other)
  Sender: FDA-Public Use
  Company Number: US-ABBOTT-13P-163-1065813-00

PATIENT
  Sex: Female
  Weight: 58.57 kg

DRUGS (3)
  1. HUMIRA [Suspect]
     Indication: CROHN^S DISEASE
     Route: 058
     Dates: start: 20120119, end: 20120119
  2. HUMIRA [Suspect]
     Route: 058
     Dates: start: 20120202, end: 20120202
  3. HUMIRA [Suspect]
     Route: 058
     Dates: start: 20120216, end: 201210

REACTIONS (2)
  - Smear cervix abnormal [Unknown]
  - Precancerous cells present [Unknown]
